FAERS Safety Report 8620684 (Version 2)
Quarter: 2013Q2

REPORT INFORMATION
  Report Type: Spontaneous
  Country: US (occurrence: US)
  Receive Date: 20120618
  Receipt Date: 20130521
  Transmission Date: 20140414
  Serious: No
  Sender: FDA-Public Use
  Company Number: US-TEVA-336371USA

PATIENT
  Age: 57 Year
  Sex: Male

DRUGS (1)
  1. ACTIQ [Suspect]
     Indication: MUSCULOSKELETAL PAIN
     Dosage: 100 MICROGRAM DAILY;
     Route: 002
     Dates: start: 20120409, end: 20120410

REACTIONS (4)
  - Nausea [Recovered/Resolved]
  - Vomiting [Recovered/Resolved]
  - Off label use [Unknown]
  - Drug administration error [Unknown]
